FAERS Safety Report 6704806-5 (Version None)
Quarter: 2010Q2

REPORT INFORMATION
  Report Type: 
  Country: None (occurrence: None)
  Receive Date: 20100430
  Receipt Date: 20100201
  Transmission Date: 20101027
  Serious: No
  Sender: FDA-Public Use
  Company Number: US-ASTRAZENECA-2009SE21538

PATIENT
  Age: 38 Year
  Sex: Female
  Weight: 98.9 kg

DRUGS (12)
  1. NEXIUM [Suspect]
     Route: 048
  2. BUSPAR [Concomitant]
  3. TIZANIDINE HCL [Concomitant]
  4. PROMETHAZINE [Concomitant]
  5. FIORICET [Concomitant]
  6. LUNESTA [Concomitant]
  7. AMBIEN [Concomitant]
  8. DIOVAN [Concomitant]
  9. LEVOTHYROXINE [Concomitant]
  10. METFORMIN [Concomitant]
  11. LISINOPRIL [Concomitant]
  12. SIMVASTATIN [Concomitant]

REACTIONS (4)
  - ABDOMINAL DISCOMFORT [None]
  - DIABETES MELLITUS [None]
  - HEADACHE [None]
  - MEMORY IMPAIRMENT [None]
